FAERS Safety Report 20477488 (Version 2)
Quarter: 2022Q1

REPORT INFORMATION
  Report Type: Report from Study
  Country: IT (occurrence: IT)
  Receive Date: 20220216
  Receipt Date: 20220222
  Transmission Date: 20220423
  Serious: Yes (Hospitalization)
  Sender: FDA-Public Use
  Company Number: IT-ABBVIE-22K-083-4257928-00

PATIENT
  Age: 80 Year
  Sex: Male

DRUGS (2)
  1. CARBIDOPA\LEVODOPA [Suspect]
     Active Substance: CARBIDOPA\LEVODOPA
     Indication: Parkinson^s disease
     Dosage: TOTAL DAILY DOSE (MG): 1214; PUMP SETTING: MD: 4,5+3; CR: 3,8 (14H); ED: 1,5
     Route: 050
     Dates: start: 20170123
  2. CARBIDOPA\LEVODOPA [Suspect]
     Active Substance: CARBIDOPA\LEVODOPA
     Dosage: TOTAL DAILY DOSE (MG): 1214; PUMP SETTING: MD: 4,5+3; CR: 3,8 (14H); ED: 1,5
     Route: 050

REACTIONS (4)
  - COVID-19 [Recovering/Resolving]
  - Intestinal obstruction [Recovering/Resolving]
  - Pneumonia [Recovering/Resolving]
  - Incorrect route of product administration [Not Recovered/Not Resolved]

NARRATIVE: CASE EVENT DATE: 20220101
